FAERS Safety Report 25503928 (Version 1)
Quarter: 2025Q3

REPORT INFORMATION
  Report Type: Spontaneous
  Country: JP (occurrence: JP)
  Receive Date: 20250702
  Receipt Date: 20250702
  Transmission Date: 20251020
  Serious: Yes (Other)
  Sender: OTSUKA
  Company Number: JP-MMM-Otsuka-0TCKA82H

PATIENT
  Age: 79 Year
  Sex: Male

DRUGS (3)
  1. REXULTI [Suspect]
     Active Substance: BREXPIPRAZOLE
     Indication: Dementia Alzheimer^s type
     Dosage: 2 MG/DAY
     Route: 048
     Dates: start: 20241015, end: 20250123
  2. REXULTI [Suspect]
     Active Substance: BREXPIPRAZOLE
     Indication: Irritability
     Route: 048
     Dates: start: 20240925, end: 20241014
  3. REXULTI [Suspect]
     Active Substance: BREXPIPRAZOLE
     Indication: Psychomotor hyperactivity

REACTIONS (2)
  - Hepatic function abnormal [Recovered/Resolved]
  - Product use issue [Unknown]

NARRATIVE: CASE EVENT DATE: 20240925
